FAERS Safety Report 17429748 (Version 1)
Quarter: 2020Q1

REPORT INFORMATION
  Report Type: Spontaneous
  Country: FR (occurrence: FR)
  Receive Date: 20200218
  Receipt Date: 20200218
  Transmission Date: 20200409
  Serious: Yes (Other)
  Sender: FDA-Public Use
  Company Number: FR-MYLANLABS-2020M1016490

PATIENT
  Age: 34 Year
  Sex: Female

DRUGS (5)
  1. KETAMINE RENAUDIN [Suspect]
     Active Substance: KETAMINE
     Indication: ANAESTHESIA
     Dosage: 1 DOSAGE FORM
     Route: 042
     Dates: start: 20171127, end: 20171127
  2. CISATRACURIUM MYLAN [Suspect]
     Active Substance: CISATRACURIUM
     Indication: ANAESTHESIA
     Dosage: 1 DOSAGE FORM
     Route: 042
     Dates: start: 20171127, end: 20171127
  3. DEXAMETHASONE MYLAN [Suspect]
     Active Substance: DEXAMETHASONE
     Indication: ANAESTHESIA
     Dosage: 1 DOSAGE FORM
     Route: 042
     Dates: start: 20171127, end: 20171127
  4. SUFENTANIL MYLAN [Suspect]
     Active Substance: SUFENTANIL
     Indication: ANAESTHESIA
     Dosage: 1 DOSAGE FORM
     Route: 042
     Dates: start: 20171127, end: 20171127
  5. PROPOFOL. [Suspect]
     Active Substance: PROPOFOL
     Indication: ANAESTHESIA
     Dosage: 1 DOSAGE FORM, TOTAL
     Route: 042
     Dates: start: 20171127, end: 20171127

REACTIONS (1)
  - Anaphylactic shock [Recovered/Resolved]

NARRATIVE: CASE EVENT DATE: 20171127
